FAERS Safety Report 18346892 (Version 4)
Quarter: 2021Q2

REPORT INFORMATION
  Report Type: Spontaneous
  Country: US (occurrence: US)
  Receive Date: 20201005
  Receipt Date: 20210416
  Transmission Date: 20210717
  Serious: Yes (Hospitalization)
  Sender: FDA-Public Use
  Company Number: US-SEATTLE GENETICS-2020SGN03261

PATIENT
  Sex: Female

DRUGS (4)
  1. TUKYSA [Suspect]
     Active Substance: TUCATINIB
     Dosage: 300 MG, BID
     Route: 048
     Dates: start: 20200708
  2. TUKYSA [Suspect]
     Active Substance: TUCATINIB
     Indication: BREAST CANCER FEMALE
     Dosage: UNK UNK, BID
  3. CAPECITABINE. [Concomitant]
     Active Substance: CAPECITABINE
     Indication: BREAST CANCER FEMALE
  4. HERCEPTIN [Concomitant]
     Active Substance: TRASTUZUMAB
     Indication: BREAST CANCER FEMALE
     Dosage: Q3W

REACTIONS (18)
  - Diarrhoea [Recovering/Resolving]
  - Blood urea decreased [Unknown]
  - Haemoglobin decreased [Unknown]
  - Nausea [Unknown]
  - Fatigue [Unknown]
  - Vomiting [Recovering/Resolving]
  - Thrombosis [Unknown]
  - Red blood cell count decreased [Unknown]
  - Vomiting [Unknown]
  - Bacterial infection [Unknown]
  - Blood urine present [Unknown]
  - Product dose omission issue [Unknown]
  - Sepsis [Recovering/Resolving]
  - Memory impairment [Unknown]
  - Hepatic enzyme increased [Unknown]
  - Large intestine polyp [Unknown]
  - Urinary tract infection [Recovered/Resolved]
  - Rash [Unknown]
